FAERS Safety Report 20703989 (Version 1)
Quarter: 2022Q2

REPORT INFORMATION
  Report Type: Spontaneous
  Country: US (occurrence: US)
  Receive Date: 20220413
  Receipt Date: 20220413
  Transmission Date: 20220720
  Serious: No
  Sender: FDA-Public Use
  Company Number: US-NOVARTISTESTPH-NVSC2022US083142

PATIENT
  Sex: Female

DRUGS (1)
  1. COSENTYX [Suspect]
     Active Substance: SECUKINUMAB
     Indication: Psoriatic arthropathy
     Route: 065

REACTIONS (6)
  - Irritability [Unknown]
  - Headache [Unknown]
  - Rhinorrhoea [Unknown]
  - Arthralgia [Unknown]
  - Condition aggravated [Unknown]
  - Psoriasis [Unknown]
